FAERS Safety Report 6773892 (Version 2)
Quarter: 2013Q1

REPORT INFORMATION
  Report Type: Spontaneous
  Country: US (occurrence: US)
  Receive Date: 20080929
  Receipt Date: 20130219
  Transmission Date: 20140127
  Serious: No
  Sender: FDA-Public Use
  Company Number: US-BRISTOL-MYERS SQUIBB COMPANY-14248900

PATIENT
  Age: 57 Year
  Sex: Female
  Weight: 65.76 kg

DRUGS (3)
  1. ORENCIA FOR INJ [Suspect]
     Indication: PSORIATIC ARTHROPATHY
     Dosage: INUSION : 2?IV YRS AGO,DISCONTINUE:APR2009?ALSO ON SQ
     Route: 058
     Dates: start: 200806
  2. PREDNISONE [Concomitant]
  3. PREMARIN [Concomitant]

REACTIONS (3)
  - Local swelling [Unknown]
  - Pyrexia [Unknown]
  - Influenza like illness [Unknown]
